FAERS Safety Report 17333216 (Version 2)
Quarter: 2021Q3

REPORT INFORMATION
  Report Type: Other
  Country: MX (occurrence: MX)
  Receive Date: 20200128
  Receipt Date: 20210713
  Transmission Date: 20211014
  Serious: Yes (Other)
  Sender: FDA-Public Use
  Company Number: MX-ROCHE-2531379

PATIENT
  Age: 49 Year
  Sex: Female

DRUGS (5)
  1. OMPRAZOLE [Concomitant]
     Active Substance: OMEPRAZOLE
     Indication: GASTRITIS
  2. FOLIVITAL [Concomitant]
  3. TRAMACET [Concomitant]
     Active Substance: ACETAMINOPHEN\TRAMADOL
  4. CELEBREX [Concomitant]
     Active Substance: CELECOXIB
     Indication: PAIN
  5. ROACTEMRA [Suspect]
     Active Substance: TOCILIZUMAB
     Indication: RHEUMATOID ARTHRITIS
     Route: 042
     Dates: start: 20181027

REACTIONS (15)
  - Osteopenia [Unknown]
  - Tachycardia [Unknown]
  - Musculoskeletal disorder [Unknown]
  - Dyspnoea [Unknown]
  - Pain [Unknown]
  - Joint range of motion decreased [Unknown]
  - Hypoaesthesia [Not Recovered/Not Resolved]
  - Malaise [Unknown]
  - Arthropathy [Unknown]
  - Spinal pain [Unknown]
  - Feeling abnormal [Recovered/Resolved]
  - Back disorder [Unknown]
  - Blood pressure decreased [Unknown]
  - Speech disorder [Unknown]
  - Eye disorder [Unknown]

NARRATIVE: CASE EVENT DATE: 20191220
